FAERS Safety Report 7536630-8 (Version None)
Quarter: 2011Q2

REPORT INFORMATION
  Report Type: 
  Country: None (occurrence: None)
  Receive Date: 20110608
  Receipt Date: 20110608
  Transmission Date: 20111010
  Serious: Yes (Other)
  Sender: FDA-Public Use
  Company Number: None

PATIENT
  Age: 53 Year
  Sex: Female
  Weight: 111.1313 kg

DRUGS (2)
  1. CYMBALTA [Suspect]
     Indication: PAIN
     Dosage: 30MG X1/DAY VIA MOUTH
     Route: 048
     Dates: start: 20110501, end: 20110527
  2. CYMBALTA [Suspect]
     Indication: FIBROMYALGIA

REACTIONS (11)
  - FATIGUE [None]
  - PARAESTHESIA [None]
  - MUSCULAR WEAKNESS [None]
  - NAUSEA [None]
  - OEDEMA PERIPHERAL [None]
  - MYALGIA [None]
  - MOVEMENT DISORDER [None]
  - BURNING SENSATION [None]
  - RETCHING [None]
  - INSOMNIA [None]
  - TREMOR [None]
